FAERS Safety Report 17019992 (Version 1)
Quarter: 2019Q4

REPORT INFORMATION
  Report Type: Spontaneous
  Country: US (occurrence: US)
  Receive Date: 20191112
  Receipt Date: 20191112
  Transmission Date: 20200122
  Serious: No
  Sender: FDA-Public Use
  Company Number: US-GILEAD-2019-0436843

PATIENT
  Sex: Female

DRUGS (10)
  1. ALBUTEROL SULFATE. [Concomitant]
     Active Substance: ALBUTEROL SULFATE
     Dosage: UNKNOWN
  2. VITAMIN C [Concomitant]
     Active Substance: ASCORBIC ACID
     Dosage: UNKNOWN
  3. QVAR REDIHALER [Concomitant]
     Active Substance: BECLOMETHASONE DIPROPIONATE
     Dosage: UNKNOWN
  4. SOFOSBUVIR;VELPATASVIR [Suspect]
     Active Substance: SOFOSBUVIR\VELPATASVIR
     Indication: CHRONIC HEPATITIS C
     Dosage: 1 DOSAGE FORM, QD
     Route: 048
     Dates: start: 20191025
  5. EXCEDRIN MIGRAINE [Concomitant]
     Active Substance: ACETAMINOPHEN\ASPIRIN\CAFFEINE
     Dosage: UNKNOWN
  6. VITAMIN B12 [Concomitant]
     Active Substance: CYANOCOBALAMIN
     Dosage: UNKNOWN
  7. NICOTINE TRANSDERMAL SYSTEM [Concomitant]
     Active Substance: NICOTINE
     Dosage: UNKNOWN
  8. VITAMIN D [COLECALCIFEROL] [Concomitant]
     Active Substance: CHOLECALCIFEROL
     Dosage: UNKNOWN
  9. SPIRIVA RESPIMAT [Concomitant]
     Active Substance: TIOTROPIUM BROMIDE
     Dosage: UNKNOWN
  10. ZESTRIL [Concomitant]
     Active Substance: LISINOPRIL
     Dosage: UNKNOWN

REACTIONS (2)
  - Malnutrition [Not Recovered/Not Resolved]
  - Hypoaesthesia [Not Recovered/Not Resolved]
